FAERS Safety Report 4753943-3 (Version None)
Quarter: 2005Q3

REPORT INFORMATION
  Report Type: 
  Country: None (occurrence: None)
  Receive Date: 20050825
  Receipt Date: 20050819
  Transmission Date: 20060218
  Serious: Yes (Other)
  Sender: FDA-Public Use
  Company Number: SUSI-2005-00513

PATIENT
  Age: 21 Year
  Sex: Male
  Weight: 65.8 kg

DRUGS (3)
  1. ADDERALL XR 10 [Suspect]
     Dates: start: 20030101, end: 20050401
  2. ABILIFY [Concomitant]
  3. RITALIN [Concomitant]

REACTIONS (14)
  - AGITATION [None]
  - AMNESIA [None]
  - BRADYPHRENIA [None]
  - DELUSION [None]
  - DEPRESSED MOOD [None]
  - DEPRESSION [None]
  - EUPHORIC MOOD [None]
  - EYE PAIN [None]
  - FATIGUE [None]
  - FEELING ABNORMAL [None]
  - HYPERVENTILATION [None]
  - MENTAL IMPAIRMENT [None]
  - SOCIAL AVOIDANT BEHAVIOUR [None]
  - SWELLING FACE [None]
